FAERS Safety Report 22376322 (Version 1)
Quarter: 2023Q2

REPORT INFORMATION
  Report Type: Spontaneous
  Country: AU (occurrence: AU)
  Receive Date: 20230527
  Receipt Date: 20230527
  Transmission Date: 20230722
  Serious: Yes (Hospitalization, Other)
  Sender: FDA-Public Use
  Company Number: AU-STRIDES ARCOLAB LIMITED-2023SP007661

PATIENT

DRUGS (2)
  1. HYDROCORTISONE [Suspect]
     Active Substance: HYDROCORTISONE
     Indication: Product used for unknown indication
     Dosage: UNK
     Route: 064
  2. INSULIN NOS [Suspect]
     Active Substance: INSULIN NOS
     Indication: Product used for unknown indication
     Dosage: UNK
     Route: 064

REACTIONS (3)
  - Intellectual disability [Unknown]
  - Foetal growth restriction [Unknown]
  - Foetal exposure during pregnancy [Unknown]
